FAERS Safety Report 9169024 (Version 1)
Quarter: 2013Q1

REPORT INFORMATION
  Report Type: Spontaneous
  Country: GB (occurrence: GB)
  Receive Date: 20130318
  Receipt Date: 20130318
  Transmission Date: 20140127
  Serious: Yes (Death)
  Sender: FDA-Public Use
  Company Number: GB-ROCHE-1202583

PATIENT
  Age: 69 Year
  Sex: Male
  Weight: 101 kg

DRUGS (6)
  1. OMALIZUMAB [Suspect]
     Indication: ASTHMA
     Route: 058
     Dates: start: 20121024, end: 20130131
  2. SYMBICORT [Concomitant]
  3. PREDNISOLONE [Concomitant]
  4. MONTELUKAST [Concomitant]
  5. TIOTROPIUM [Concomitant]
  6. SALBUTAMOL [Concomitant]

REACTIONS (1)
  - Pneumonia [Fatal]
